FAERS Safety Report 10775024 (Version 3)
Quarter: 2015Q1

REPORT INFORMATION
  Report Type: Spontaneous
  Country: NZ (occurrence: NZ)
  Receive Date: 20150209
  Receipt Date: 20150309
  Transmission Date: 20150721
  Serious: Yes (Death, Hospitalization)
  Sender: FDA-Public Use
  Company Number: NZ-JNJFOC-20150204641

PATIENT
  Age: 75 Year
  Sex: Male
  Weight: 78 kg

DRUGS (4)
  1. WARFARIN [Concomitant]
     Active Substance: WARFARIN
     Indication: DEEP VEIN THROMBOSIS
     Route: 048
     Dates: end: 20141213
  2. REMICADE [Suspect]
     Active Substance: INFLIXIMAB
     Indication: CROHN^S DISEASE
     Route: 042
     Dates: start: 20141030, end: 20141210
  3. PREDNISONE. [Suspect]
     Active Substance: PREDNISONE
     Indication: CROHN^S DISEASE
     Route: 048
     Dates: start: 201410, end: 20141213
  4. VITAMIN D [Concomitant]
     Active Substance: CHOLECALCIFEROL
     Indication: OSTEOPENIA
     Route: 048
     Dates: end: 20141210

REACTIONS (13)
  - Melaena [Unknown]
  - Fatigue [Unknown]
  - Internal haemorrhage [Fatal]
  - Blood pressure inadequately controlled [Unknown]
  - Fall [Unknown]
  - Tachycardia [Fatal]
  - Atrial fibrillation [Unknown]
  - Respiratory rate increased [Unknown]
  - Abdominal sepsis [Fatal]
  - Crohn^s disease [Fatal]
  - Loss of consciousness [Fatal]
  - Diarrhoea [Unknown]
  - Haemoglobin decreased [Unknown]

NARRATIVE: CASE EVENT DATE: 20150110
